FAERS Safety Report 23177589 (Version 2)
Quarter: 2024Q1

REPORT INFORMATION
  Report Type: Spontaneous
  Country: US (occurrence: US)
  Receive Date: 20231113
  Receipt Date: 20240105
  Transmission Date: 20240410
  Serious: No
  Sender: FDA-Public Use
  Company Number: US-Vifor (International) Inc.-VIT-2023-07857

PATIENT
  Age: 48 Year
  Sex: Female
  Weight: 69.5 kg

DRUGS (9)
  1. MIRCERA [Suspect]
     Active Substance: METHOXY POLYETHYLENE GLYCOL-EPOETIN BETA
     Indication: Anaemia
     Dosage: MIRCERA DOSE NUMBER: 1 AND DOSE CATEGORY: DOSE 1
     Route: 040
     Dates: start: 20230915, end: 20230915
  2. DIPHENHYDRAMINE [Concomitant]
     Active Substance: DIPHENHYDRAMINE
  3. CALCITRIOL [Concomitant]
     Active Substance: CALCITRIOL
     Route: 048
  4. CARVEDILOL [Concomitant]
     Active Substance: CARVEDILOL
     Route: 048
  5. FLUOXETINE [Concomitant]
     Active Substance: FLUOXETINE HYDROCHLORIDE
     Route: 048
  6. LOSARTAN [Concomitant]
     Active Substance: LOSARTAN
     Route: 048
  7. MELATONIN [Concomitant]
     Active Substance: MELATONIN
     Route: 048
  8. NIFEDIPINE [Concomitant]
     Active Substance: NIFEDIPINE
     Route: 048
  9. SEVELAMER [Concomitant]
     Active Substance: SEVELAMER
     Route: 048

REACTIONS (3)
  - Drug hypersensitivity [Recovered/Resolved]
  - Pruritus [Recovered/Resolved]
  - Nausea [Recovered/Resolved]

NARRATIVE: CASE EVENT DATE: 20230915
